FAERS Safety Report 24195052 (Version 1)
Quarter: 2024Q3

REPORT INFORMATION
  Report Type: Spontaneous
  Country: JP (occurrence: JP)
  Receive Date: 20240809
  Receipt Date: 20240809
  Transmission Date: 20241016
  Serious: Yes (Death, Other)
  Sender: MERCK
  Company Number: JP-ONO-2024JP016439

PATIENT
  Age: 8 Decade
  Sex: Female

DRUGS (4)
  1. SITAGLIPTIN [Suspect]
     Active Substance: SITAGLIPTIN
     Indication: Type 2 diabetes mellitus
     Dosage: 50 MG
     Route: 048
  2. DAPAGLIFLOZIN [Suspect]
     Active Substance: DAPAGLIFLOZIN
     Indication: Type 2 diabetes mellitus
     Dosage: 5 MG
     Route: 048
     Dates: start: 20240415
  3. AMARYL [Concomitant]
     Active Substance: GLIMEPIRIDE
     Dosage: 1 MG, Q12H
     Route: 065
  4. METFORMIN HYDROCHLORIDE [Concomitant]
     Active Substance: METFORMIN HYDROCHLORIDE
     Dosage: UNK
     Route: 065

REACTIONS (1)
  - Death [Fatal]
